FAERS Safety Report 26183046 (Version 1)
Quarter: 2025Q4

REPORT INFORMATION
  Report Type: Spontaneous
  Country: US (occurrence: US)
  Receive Date: 20251221
  Receipt Date: 20251221
  Transmission Date: 20260117
  Serious: Yes (Death, Hospitalization, Other)
  Sender: UNICHEM
  Company Number: US-UNICHEM LABORATORIES LIMITED-UNI-2025-US-004210

PATIENT

DRUGS (6)
  1. QUETIAPINE [Suspect]
     Active Substance: QUETIAPINE
     Indication: Schizophrenia
     Dosage: UNK
     Route: 065
  2. QUETIAPINE [Suspect]
     Active Substance: QUETIAPINE
     Indication: Bipolar disorder
  3. TRAZODONE [Suspect]
     Active Substance: TRAZODONE HYDROCHLORIDE
     Indication: Schizophrenia
     Dosage: UNK
     Route: 065
  4. TRAZODONE [Suspect]
     Active Substance: TRAZODONE HYDROCHLORIDE
     Indication: Bipolar disorder
  5. CLONAZEPAM [Concomitant]
     Active Substance: CLONAZEPAM
     Indication: Schizophrenia
     Dosage: UNK
     Route: 065
  6. CLONAZEPAM [Concomitant]
     Active Substance: CLONAZEPAM
     Indication: Bipolar disorder

REACTIONS (14)
  - Brain injury [Fatal]
  - Intentional overdose [Unknown]
  - Ventricular tachycardia [Unknown]
  - Atrial fibrillation [Unknown]
  - Electrocardiogram QRS complex prolonged [Unknown]
  - Acute coronary syndrome [Unknown]
  - Pulseless electrical activity [Unknown]
  - Cardiac arrest [Unknown]
  - Ischaemia [Unknown]
  - Toxicity to various agents [Unknown]
  - Acidosis [Unknown]
  - Bradycardia [Unknown]
  - Blood creatinine increased [Unknown]
  - Hypokalaemia [Unknown]
